FAERS Safety Report 18820966 (Version 1)
Quarter: 2021Q1

REPORT INFORMATION
  Report Type: Spontaneous
  Country: US (occurrence: US)
  Receive Date: 20210202
  Receipt Date: 20210202
  Transmission Date: 20210419
  Serious: No
  Sender: FDA-Public Use
  Company Number: None

PATIENT
  Age: 32 Year
  Sex: Female
  Weight: 98.1 kg

DRUGS (2)
  1. MELOXICAM. [Suspect]
     Active Substance: MELOXICAM
     Indication: PAIN IN EXTREMITY
     Dosage: ?          QUANTITY:1 TABLET(S);?
     Route: 048
     Dates: start: 20210131, end: 20210131
  2. NORETHINDRONE. [Concomitant]
     Active Substance: NORETHINDRONE

REACTIONS (6)
  - Dizziness [None]
  - Nausea [None]
  - Hyperhidrosis [None]
  - Tremor [None]
  - Aphthous ulcer [None]
  - Vomiting [None]

NARRATIVE: CASE EVENT DATE: 20210131
